FAERS Safety Report 5715645-6 (Version None)
Quarter: 2008Q2

REPORT INFORMATION
  Report Type: 
  Country: None (occurrence: None)
  Receive Date: 20080424
  Receipt Date: 20080324
  Transmission Date: 20081010
  Serious: No
  Sender: FDA-Public Use
  Company Number: US-BAYER-200818454NA

PATIENT
  Age: 54 Year
  Sex: Female

DRUGS (2)
  1. ANGELIQ [Suspect]
     Indication: HOT FLUSH
     Route: 048
     Dates: start: 20080101
  2. CALCIUM [Concomitant]
     Indication: PAIN IN EXTREMITY
     Dates: start: 20080101

REACTIONS (2)
  - ARTHRITIS [None]
  - PAIN IN EXTREMITY [None]
